FAERS Safety Report 12490840 (Version 1)
Quarter: 2016Q2

REPORT INFORMATION
  Report Type: Spontaneous
  Country: US (occurrence: US)
  Receive Date: 20160623
  Receipt Date: 20160623
  Transmission Date: 20160815
  Serious: Yes (Hospitalization)
  Sender: FDA-Public Use
  Company Number: US-ASTRAZENECA-2016SE66034

PATIENT
  Age: 654 Month
  Sex: Male
  Weight: 113.9 kg

DRUGS (11)
  1. SEROQUEL XR [Suspect]
     Active Substance: QUETIAPINE FUMARATE
     Indication: BIPOLAR DISORDER
     Route: 048
     Dates: start: 2008, end: 201501
  2. SEROQUEL XR [Suspect]
     Active Substance: QUETIAPINE FUMARATE
     Indication: DEPRESSION
     Route: 048
     Dates: start: 201501
  3. GABAPENTIN. [Concomitant]
     Active Substance: GABAPENTIN
     Indication: NEUROPATHY PERIPHERAL
     Dosage: 800 MG AT THREE PM
     Route: 048
     Dates: start: 2007
  4. SEROQUEL XR [Suspect]
     Active Substance: QUETIAPINE FUMARATE
     Indication: DEPRESSION
     Route: 048
     Dates: start: 2008, end: 201501
  5. SEROQUEL XR [Suspect]
     Active Substance: QUETIAPINE FUMARATE
     Indication: BIPOLAR DISORDER
     Route: 048
     Dates: start: 201501
  6. CITRALOPAM HBR [Concomitant]
     Indication: ANXIETY
     Route: 048
     Dates: start: 2000
  7. ATORVASTATIN [Concomitant]
     Active Substance: ATORVASTATIN
     Indication: BLOOD PRESSURE ABNORMAL
     Route: 048
  8. METOPROLOL SUCCINATE. [Suspect]
     Active Substance: METOPROLOL SUCCINATE
     Indication: HYPERTENSION
     Route: 048
  9. LOSARTAN POTASSIUM. [Concomitant]
     Active Substance: LOSARTAN POTASSIUM
     Indication: BLOOD PRESSURE ABNORMAL
     Route: 048
     Dates: start: 2015
  10. GABAPENTIN. [Concomitant]
     Active Substance: GABAPENTIN
     Indication: NEUROPATHY PERIPHERAL
     Route: 048
     Dates: start: 2007
  11. CITRALOPAM HBR [Concomitant]
     Indication: ANXIETY
     Dosage: 40 MG AT BEDTIME AND 40 MG AS NEEDED
     Route: 048
     Dates: start: 2000

REACTIONS (9)
  - Myocardial infarction [Unknown]
  - Pain in extremity [Unknown]
  - Mood swings [Unknown]
  - Blood glucose abnormal [Unknown]
  - Bipolar disorder [Unknown]
  - Neuropathy peripheral [Unknown]
  - Arthralgia [Unknown]
  - Renal failure [Unknown]
  - Gout [Unknown]

NARRATIVE: CASE EVENT DATE: 200606
